FAERS Safety Report 18021066 (Version 3)
Quarter: 2020Q4

REPORT INFORMATION
  Report Type: Report from Study
  Country: None (occurrence: US)
  Receive Date: 20200714
  Receipt Date: 20201022
  Transmission Date: 20210113
  Serious: Yes (Other)
  Sender: FDA-Public Use
  Company Number: US-ABBVIE-20K-163-3439371-00

PATIENT
  Age: 55 Year
  Sex: Female
  Weight: 59.02 kg

DRUGS (3)
  1. HUMIRA [Suspect]
     Active Substance: ADALIMUMAB
     Indication: RHEUMATOID ARTHRITIS
     Route: 058
  2. METHOTREXATE. [Concomitant]
     Active Substance: METHOTREXATE
     Indication: PRODUCT USED FOR UNKNOWN INDICATION
  3. RINVOQ [Suspect]
     Active Substance: UPADACITINIB
     Indication: RHEUMATOID ARTHRITIS
     Route: 048
     Dates: start: 202001

REACTIONS (24)
  - Osteoarthritis [Unknown]
  - Haemorrhagic diathesis [Not Recovered/Not Resolved]
  - Tendon disorder [Unknown]
  - Cellulitis staphylococcal [Unknown]
  - Increased tendency to bruise [Not Recovered/Not Resolved]
  - Intracranial aneurysm [Unknown]
  - Arthropathy [Not Recovered/Not Resolved]
  - Blood pressure increased [Unknown]
  - Diarrhoea [Unknown]
  - Pain [Unknown]
  - Eye swelling [Recovered/Resolved]
  - Arthropathy [Unknown]
  - Stress [Unknown]
  - Arthralgia [Not Recovered/Not Resolved]
  - Urinary incontinence [Unknown]
  - Urticaria [Recovered/Resolved]
  - Foot deformity [Not Recovered/Not Resolved]
  - Osteomyelitis [Unknown]
  - Humidity intolerance [Unknown]
  - Post procedural complication [Unknown]
  - Swelling [Not Recovered/Not Resolved]
  - Hypoaesthesia [Not Recovered/Not Resolved]
  - Mood altered [Not Recovered/Not Resolved]
  - Laryngitis [Not Recovered/Not Resolved]

NARRATIVE: CASE EVENT DATE: 2016
